FAERS Safety Report 22734515 (Version 4)
Quarter: 2025Q2

REPORT INFORMATION
  Report Type: Spontaneous
  Country: US (occurrence: US)
  Receive Date: 20230721
  Receipt Date: 20250629
  Transmission Date: 20250716
  Serious: No
  Sender: SANOFI AVENTIS
  Company Number: US-SA-SAC20230720000592

PATIENT
  Age: 46 Year
  Sex: Female

DRUGS (1)
  1. DUPIXENT [Suspect]
     Active Substance: DUPILUMAB
     Indication: Dermatitis atopic
     Dosage: 300 MG, QOW
     Route: 058

REACTIONS (8)
  - Eyelid exfoliation [Unknown]
  - Eye pain [Recovering/Resolving]
  - Skin exfoliation [Unknown]
  - Dry eye [Recovering/Resolving]
  - Respiratory tract infection [Unknown]
  - Vision blurred [Unknown]
  - Eczema [Unknown]
  - Product dose omission issue [Unknown]
